FAERS Safety Report 15156921 (Version 2)
Quarter: 2018Q3

REPORT INFORMATION
  Report Type: Report from Study
  Country: None (occurrence: US)
  Receive Date: 20180718
  Receipt Date: 20180929
  Transmission Date: 20181010
  Serious: Yes (Hospitalization, Other)
  Sender: FDA-Public Use
  Company Number: US-ABBVIE-18K-163-2421185-00

PATIENT
  Age: 61 Year
  Sex: Female
  Weight: 106.69 kg

DRUGS (1)
  1. HUMIRA [Suspect]
     Active Substance: ADALIMUMAB
     Indication: RHEUMATOID ARTHRITIS
     Route: 058
     Dates: end: 2018

REACTIONS (13)
  - Intestinal operation [Unknown]
  - Constipation [Unknown]
  - Chest pain [Unknown]
  - Groin pain [Unknown]
  - Hiatus hernia [Unknown]
  - Pyrexia [Unknown]
  - Hepatic vascular thrombosis [Recovering/Resolving]
  - Cholecystectomy [Unknown]
  - Intestinal anastomosis [Unknown]
  - Renal cyst [Unknown]
  - Hepatic steatosis [Unknown]
  - Hepatic lesion [Not Recovered/Not Resolved]
  - Abdominal hernia [Unknown]

NARRATIVE: CASE EVENT DATE: 20180613
